FAERS Safety Report 20047629 (Version 3)
Quarter: 2021Q4

REPORT INFORMATION
  Report Type: Spontaneous
  Country: US (occurrence: None)
  Receive Date: 20211109
  Receipt Date: 20211218
  Transmission Date: 20220304
  Serious: Yes (Other)
  Sender: FDA-Public Use
  Company Number: US-ROCHE-2949961

PATIENT
  Age: 59 Year
  Sex: Female

DRUGS (3)
  1. XOLAIR [Suspect]
     Active Substance: OMALIZUMAB
     Indication: Product used for unknown indication
     Dosage: 75 MG SYRINGE, AND 150 MG SYRINGE ;ONGOING: YES
     Route: 058
     Dates: start: 202101
  2. XOLAIR [Suspect]
     Active Substance: OMALIZUMAB
  3. INSULIN NOS [Concomitant]
     Active Substance: INSULIN NOS

REACTIONS (8)
  - Diabetes mellitus [Unknown]
  - Device malfunction [Unknown]
  - Illness [Unknown]
  - Product dose omission issue [Unknown]
  - Urticaria [Recovered/Resolved]
  - Pruritus [Recovered/Resolved]
  - Wheezing [Recovered/Resolved]
  - Leukaemia [Unknown]

NARRATIVE: CASE EVENT DATE: 20211101
